FAERS Safety Report 9339428 (Version 1)
Quarter: 2013Q2

REPORT INFORMATION
  Report Type: Spontaneous
  Country: JP (occurrence: JP)
  Receive Date: 20130610
  Receipt Date: 20130610
  Transmission Date: 20140414
  Serious: Yes (Death, Hospitalization, Other)
  Sender: FDA-Public Use
  Company Number: JP-ROCHE-1231627

PATIENT
  Age: 60 Year
  Sex: Female
  Weight: 36 kg

DRUGS (1)
  1. HERCEPTIN [Suspect]
     Indication: BREAST CANCER
     Dosage: DOSAGE IS UNCERTAIN.
     Route: 041

REACTIONS (10)
  - Cardiac failure [Fatal]
  - Device related infection [Unknown]
  - Skin ulcer [Unknown]
  - Renal tubular necrosis [Unknown]
  - Atrial fibrillation [Unknown]
  - Sick sinus syndrome [Unknown]
  - Multi-organ failure [Unknown]
  - Gastrooesophageal reflux disease [Unknown]
  - Gastrointestinal erosion [Unknown]
  - Gastrointestinal haemorrhage [Unknown]
